FAERS Safety Report 19956977 (Version 1)
Quarter: 2021Q4

REPORT INFORMATION
  Report Type: Spontaneous
  Country: DE (occurrence: DE)
  Receive Date: 20211014
  Receipt Date: 20211014
  Transmission Date: 20220303
  Serious: Yes (Hospitalization)
  Sender: FDA-Public Use
  Company Number: DE-ADRED-06617-01

PATIENT
  Age: 70 Year
  Sex: Male
  Weight: 89 kg

DRUGS (18)
  1. EPLERENONE [Suspect]
     Active Substance: EPLERENONE
     Indication: Product used for unknown indication
     Dosage: 25 MILLIGRAM, QD, 25 MG, 1-0-0-0, TABLETS
     Route: 048
  2. EPLERENONE [Suspect]
     Active Substance: EPLERENONE
     Dosage: 40 MILLIGRAM, QD, 40 MG, 0-0-0.5-0, TABLETS
     Route: 048
  3. EPLERENONE [Suspect]
     Active Substance: EPLERENONE
     Dosage: 1.5 MILLIGRAM, 1.5 MG, BY REGIMEN, PRE-FILLED SYRINGES UNK
     Route: 058
  4. EPLERENONE [Suspect]
     Active Substance: EPLERENONE
     Dosage: 2500 INTERNATIONAL UNIT, 2500 IU, 0-0-1-0, PRE-FILLED SYRINGES UNK
  5. EPLERENONE [Suspect]
     Active Substance: EPLERENONE
     Dosage: 2.5 MILLIGRAM, BID, 2.5 MG, 0.5-0-0.5-0, TABLETS UNK
  6. RAMIPRIL [Suspect]
     Active Substance: RAMIPRIL
     Indication: Product used for unknown indication
     Dosage: 2.5 MILLIGRAM, BID, 2.5 MG, 0.5-0-0.5-0, TABLETTEN
     Route: 048
  7. TORSEMIDE [Suspect]
     Active Substance: TORSEMIDE
     Indication: Product used for unknown indication
     Dosage: 10 MILLIGRAM, QD, 10 MG, 2-0-0-0, TABLETTEN
     Route: 048
  8. TORSEMIDE [Suspect]
     Active Substance: TORSEMIDE
     Dosage: 10 MILLIGRAM, QD, 10 MG, 2-0-0-0, TABLETS UNK
     Route: 048
  9. TORSEMIDE [Suspect]
     Active Substance: TORSEMIDE
     Dosage: 1 INTERNATIONAL UNIT, TID, 1 IU, 3-3-2-0, CYLINDRICAL AMPOULES UNK
  10. INSULIN DEGLUDEC [Suspect]
     Active Substance: INSULIN DEGLUDEC
     Indication: Product used for unknown indication
     Dosage: 1 INTERNATIONAL UNIT, QD, 1 IU, 0-0-15-0, PRE-FILLED SYRINGES
     Route: 058
  11. INSULIN LISPRO [Suspect]
     Active Substance: INSULIN LISPRO
     Indication: Product used for unknown indication
     Dosage: 1 INTERNATIONAL UNIT, TID, 1 IU, 3-3-2-0, CYLINDRICAL AMPOULES
     Route: 058
  12. DULAGLUTIDE [Suspect]
     Active Substance: DULAGLUTIDE
     Indication: Product used for unknown indication
     Dosage: UNK (1.5 MG, BY REGIMEN, PRE-FILLED SYRINGES)
     Route: 058
  13. EMPAGLIFLOZIN [Suspect]
     Active Substance: EMPAGLIFLOZIN
     Indication: Product used for unknown indication
     Dosage: 10 MILLIGRAM, QD, 10 MG, 1-0-0-0, TABLETS
     Route: 048
  14. SITAGLIPTIN [Suspect]
     Active Substance: SITAGLIPTIN
     Indication: Product used for unknown indication
     Dosage: 50 MILLIGRAM, QD 50 MG, 1-0-0-0, TABLETS
     Route: 048
  15. ATORVASTATIN [Concomitant]
     Active Substance: ATORVASTATIN
     Dosage: 40 MILLIGRAM, QD, 40 MG, 0-0-0.5-0, TABLETS
     Route: 048
  16. BISOPROLOL [Concomitant]
     Active Substance: BISOPROLOL
     Dosage: 5 MILLIGRAM, BID, 5 MG, 0.5-0-0.5-0, TABLETS
     Route: 048
  17. DALTEPARIN [Concomitant]
     Active Substance: DALTEPARIN
     Dosage: 2500 INTERNATIONAL UNIT, QD, 2500 IU, 0-0-1-0, PRE-FILLED SYRINGES
     Route: 058
  18. ASPIRIN [Concomitant]
     Active Substance: ASPIRIN
     Dosage: 100 MILLIGRAM, QD, 100 MG, 0-1-0-0, TABLETS
     Route: 048

REACTIONS (2)
  - Skin ulcer [Recovering/Resolving]
  - Cellulitis [Recovering/Resolving]
